FAERS Safety Report 12806229 (Version 4)
Quarter: 2016Q4

REPORT INFORMATION
  Report Type: Report from Study
  Country: KR (occurrence: KR)
  Receive Date: 20161004
  Receipt Date: 20161107
  Transmission Date: 20170207
  Serious: Yes (Death, Hospitalization)
  Sender: FDA-Public Use
  Company Number: PHHY2016KR135649

PATIENT
  Age: 53 Year
  Sex: Female

DRUGS (3)
  1. VOTRIENT [Suspect]
     Active Substance: PAZOPANIB HYDROCHLORIDE
     Indication: RENAL CELL CARCINOMA
     Dosage: 400 MG, QD
     Route: 048
     Dates: start: 20160223, end: 20160306
  2. VOTRIENT [Suspect]
     Active Substance: PAZOPANIB HYDROCHLORIDE
     Dosage: 800 MG, UNK
     Route: 048
     Dates: start: 20160311, end: 20160313
  3. VOTRIENT [Suspect]
     Active Substance: PAZOPANIB HYDROCHLORIDE
     Dosage: 400 MG, QD
     Route: 048
     Dates: start: 20160525, end: 20160619

REACTIONS (11)
  - Pneumonia aspiration [Fatal]
  - Thrombocytopenia [Unknown]
  - Clostridium difficile infection [Recovered/Resolved]
  - Haematochezia [Recovered/Resolved]
  - Pyrexia [Unknown]
  - Pneumonia [Unknown]
  - Pleural effusion [Unknown]
  - Back pain [Unknown]
  - Dyspnoea [Unknown]
  - Malignant neoplasm progression [Fatal]
  - Productive cough [Unknown]

NARRATIVE: CASE EVENT DATE: 20160309
